FAERS Safety Report 5838281-X (Version None)
Quarter: 2008Q3

REPORT INFORMATION
  Report Type: 
  Country: None (occurrence: None)
  Receive Date: 20080808
  Receipt Date: 20080728
  Transmission Date: 20090109
  Serious: Yes (Life-Threatening, Hospitalization, Other)
  Sender: FDA-Public Use
  Company Number: GR-JNJFOC-20080502447

PATIENT
  Age: 37 Year
  Sex: Male
  Weight: 75 kg

DRUGS (5)
  1. REMICADE [Suspect]
     Indication: SACROILIITIS
     Route: 042
  2. AZATHIOPRINE [Interacting]
     Route: 048
  3. AZATHIOPRINE [Interacting]
     Indication: IRIDOCYCLITIS
     Route: 048
  4. MEDROL [Interacting]
     Indication: IRIDOCYCLITIS
     Route: 048
  5. FOSAVANCE [Concomitant]
     Indication: OSTEOPOROSIS
     Route: 048

REACTIONS (2)
  - DISSEMINATED TUBERCULOSIS [None]
  - DRUG INTERACTION [None]
